FAERS Safety Report 7723036-1 (Version None)
Quarter: 2011Q3

REPORT INFORMATION
  Report Type: 
  Country: None (occurrence: None)
  Receive Date: 20110826
  Receipt Date: 20110812
  Transmission Date: 20111222
  Serious: Yes (Other)
  Sender: FDA-Public Use
  Company Number: 019279

PATIENT
  Sex: Female

DRUGS (1)
  1. MACUGEN [Suspect]
     Dosage: ,INTRAOCULAR
     Route: 031

REACTIONS (4)
  - RETINAL VASCULAR OCCLUSION [None]
  - ACCIDENTAL OVERDOSE [None]
  - INTRAOCULAR PRESSURE INCREASED [None]
  - SYRINGE ISSUE [None]
